FAERS Safety Report 10038868 (Version 5)
Quarter: 2014Q2

REPORT INFORMATION
  Report Type: Report from Study
  Country: AU (occurrence: AU)
  Receive Date: 20140326
  Receipt Date: 20140506
  Transmission Date: 20141212
  Serious: Yes (Other)
  Sender: FDA-Public Use
  Company Number: PHHY2014AU024333

PATIENT
  Age: 66 Year
  Sex: Male
  Weight: 57.6 kg

DRUGS (12)
  1. ACLASTA [Suspect]
     Dosage: 5 MG/100ML, UNK
     Route: 042
     Dates: start: 201402
  2. ASMOL [Concomitant]
     Dosage: 100 UG/200DOSES, UNK
     Route: 048
     Dates: start: 2002, end: 2011
  3. CRESTOR [Concomitant]
     Dosage: 10 MG, QD
  4. FELDENE D [Concomitant]
     Dosage: DISPERSED IN FOOD DAILY
  5. FLUVAX [Concomitant]
     Dosage: 0.5 ML, UNK
  6. INDOCID [Concomitant]
     Dosage: 50 MG, 1 CAPSULE WITH BREAKFAST
  7. RULIDE [Concomitant]
     Dosage: 300 MG, QD
  8. SYMBICORT TU [Concomitant]
     Indication: DYSPNOEA
     Dosage: 500/12, DOSES INHALED EACH MORNNG AND NIGHT
  9. VENTOLIN                           /00942701/ [Concomitant]
     Indication: COUGH
     Dosage: 100 UG, UNK
  10. ACLASTA [Suspect]
     Dosage: 5 MG/100ML, UNK
     Route: 042
     Dates: start: 20110203
  11. ACLASTA [Suspect]
     Dosage: 5 MG/100ML, UNK
     Route: 042
     Dates: start: 20120131
  12. ACLASTA [Suspect]
     Dosage: 5 MG/100ML, UNK
     Route: 042
     Dates: start: 20130222

REACTIONS (4)
  - Osteonecrosis of jaw [Unknown]
  - Impaired healing [Not Recovered/Not Resolved]
  - High density lipoprotein increased [Unknown]
  - Osteopenia [Unknown]
